FAERS Safety Report 9398975 (Version 1)
Quarter: 2013Q3

REPORT INFORMATION
  Report Type: Spontaneous
  Country: US (occurrence: US)
  Receive Date: 20130714
  Receipt Date: 20130714
  Transmission Date: 20140515
  Serious: Yes (Other)
  Sender: FDA-Public Use
  Company Number: US-TEVA-417864USA

PATIENT
  Sex: Female

DRUGS (1)
  1. PLAN B ONE-STEP [Suspect]
     Indication: ABORTION INDUCED
     Dosage: 1.5 MILLIGRAM DAILY;
     Route: 048
     Dates: start: 20130708, end: 20130708

REACTIONS (3)
  - Intentional drug misuse [Unknown]
  - Exposure during pregnancy [Unknown]
  - Pregnancy [Unknown]
